FAERS Safety Report 4512291-7 (Version None)
Quarter: 2004Q4

REPORT INFORMATION
  Report Type: 
  Country: None (occurrence: None)
  Receive Date: 20041129
  Receipt Date: 20041013
  Transmission Date: 20050328
  Serious: Yes (Disabling)
  Sender: FDA-Public Use
  Company Number: JP-GLAXOSMITHKLINE-B0348706A

PATIENT
  Age: 62 Year
  Sex: Male

DRUGS (4)
  1. ZANTAC [Suspect]
     Indication: GASTRIC ULCER
     Dosage: 300MG PER DAY
     Route: 048
     Dates: start: 19991001, end: 20040801
  2. LENDORMIN [Suspect]
     Indication: INSOMNIA
     Dosage: 1TAB PER DAY
     Route: 048
  3. GASTROPHYLLIN [Suspect]
     Indication: GASTRIC ULCER
     Dosage: 1G TWICE PER DAY
     Route: 048
     Dates: start: 19991001
  4. ZINC SUPPLEMENT [Concomitant]
     Dates: start: 20031201

REACTIONS (4)
  - DIZZINESS [None]
  - DYSGEUSIA [None]
  - PALPITATIONS [None]
  - ZINC DEFICIENCY [None]
